FAERS Safety Report 5382818-4 (Version None)
Quarter: 2007Q3

REPORT INFORMATION
  Report Type: 
  Country: None (occurrence: None)
  Receive Date: 20070710
  Receipt Date: 20070626
  Transmission Date: 20080115
  Serious: Yes (Hospitalization)
  Sender: FDA-Public Use
  Company Number: US-ELI_LILLY_AND_COMPANY-US200706006320

PATIENT
  Sex: Female

DRUGS (2)
  1. FORTEO [Suspect]
     Dosage: UNK, UNK
     Dates: start: 20060214
  2. PREDNISONE [Concomitant]
     Indication: POLYMYALGIA RHEUMATICA
     Dates: end: 20061101

REACTIONS (5)
  - JOINT INJURY [None]
  - NIGHT SWEATS [None]
  - POLYMYALGIA RHEUMATICA [None]
  - PYREXIA [None]
  - TEMPORAL ARTERITIS [None]
